FAERS Safety Report 21577745 (Version 1)
Quarter: 2022Q4

REPORT INFORMATION
  Report Type: Spontaneous
  Country: US (occurrence: US)
  Receive Date: 20221110
  Receipt Date: 20221110
  Transmission Date: 20230112
  Serious: No
  Sender: FDA-Public Use
  Company Number: US-PFIZER INC-202201239654

PATIENT
  Age: 83 Year
  Sex: Female
  Weight: 68.04 kg

DRUGS (3)
  1. IBRANCE [Suspect]
     Active Substance: PALBOCICLIB
     Indication: Breast cancer female
     Dosage: 125 MG, CYCLIC (1 TABLET BY MOUTH DAILY ON DAYS 1-21 AS DIRECTED OF EACH 28-DAY CYCLE)
  2. HUMAN HEMATOPOIETIC PROGENITOR CELLS [Concomitant]
     Active Substance: HUMAN HEMATOPOIETIC PROGENITOR CELLS
     Indication: Neuropathy peripheral
     Dosage: 90 BILLION STEM CELLS TWICE A WEEK FOR 3HOURS; AT HOME TREATMENTS IN BETWEEN)
  3. INFLAMMA X [Concomitant]
     Indication: Supplementation therapy
     Dosage: 2 DROPS UNDER THE TONGUE)

REACTIONS (5)
  - Fall [Unknown]
  - Malaise [Unknown]
  - Tremor [Unknown]
  - Limb injury [Unknown]
  - General physical condition abnormal [Unknown]
